FAERS Safety Report 13027807 (Version 1)
Quarter: 2016Q4

REPORT INFORMATION
  Report Type: Spontaneous
  Country: CA (occurrence: CA)
  Receive Date: 20161214
  Receipt Date: 20161214
  Transmission Date: 20170207
  Serious: Yes (Life-Threatening, Other)
  Sender: FDA-Public Use
  Company Number: CA-PFIZER INC-2016540043

PATIENT
  Age: 68 Year
  Sex: Female
  Weight: 68.3 kg

DRUGS (3)
  1. DOCETAXEL. [Suspect]
     Active Substance: DOCETAXEL
     Indication: BREAST CANCER
     Dosage: 128 MG, EVERY 21 DAYS
     Route: 042
     Dates: start: 20161026, end: 20161116
  2. DEXAMETHASONE. [Concomitant]
     Active Substance: DEXAMETHASONE
     Indication: HYPERSENSITIVITY
     Dosage: 10 MG, UNK
     Route: 042
     Dates: start: 20161116
  3. ONDANSETRON [Concomitant]
     Active Substance: ONDANSETRON
     Indication: NAUSEA
     Dosage: 16 MG, UNK
     Route: 048
     Dates: start: 20161116

REACTIONS (6)
  - Wheezing [Recovered/Resolved]
  - Respiratory arrest [Recovered/Resolved]
  - Urinary incontinence [Recovered/Resolved]
  - Flushing [Recovered/Resolved]
  - Loss of consciousness [Recovered/Resolved]
  - Seizure [Recovered/Resolved]

NARRATIVE: CASE EVENT DATE: 20161116
